FAERS Safety Report 4555312-8 (Version None)
Quarter: 2004Q4

REPORT INFORMATION
  Report Type: 
  Country: None (occurrence: None)
  Receive Date: 20041227
  Receipt Date: 20040126
  Transmission Date: 20050328
  Serious: Yes (Other)
  Sender: FDA-Public Use
  Company Number: US-JNJFOC-20040105365

PATIENT
  Sex: 0

DRUGS (3)
  1. REOPRO [Suspect]
     Indication: DRUG USE FOR UNKNOWN INDICATION
     Dosage: INJECTION
  2. COUMADIN [Concomitant]
  3. LOVENOX [Concomitant]

REACTIONS (1)
  - THROMBOCYTOPENIA [None]
